FAERS Safety Report 4377475-X (Version None)
Quarter: 2004Q2

REPORT INFORMATION
  Report Type: 
  Country: None (occurrence: None)
  Receive Date: 20040615
  Receipt Date: 20040607
  Transmission Date: 20050107
  Serious: Yes (Other)
  Sender: FDA-Public Use
  Company Number: US-AMGEN-US079399

PATIENT
  Age: 80 Year
  Sex: Female
  Weight: 40.9 kg

DRUGS (1)
  1. EPOGEN [Suspect]
     Indication: ANAEMIA
     Route: 058
     Dates: start: 20020101

REACTIONS (3)
  - COLON CANCER [None]
  - METASTASES TO LIVER [None]
  - PLATELET COUNT DECREASED [None]
